FAERS Safety Report 4442605-8 (Version None)
Quarter: 2004Q3

REPORT INFORMATION
  Report Type: 
  Country: None (occurrence: None)
  Receive Date: 20040903
  Receipt Date: 20040720
  Transmission Date: 20050211
  Serious: Yes (Other)
  Sender: FDA-Public Use
  Company Number: 2004UW15223

PATIENT
  Age: 63 Year
  Sex: Male

DRUGS (7)
  1. CRESTOR [Suspect]
     Indication: HYPERLIPIDAEMIA
     Dates: start: 20040501
  2. CRESTOR [Suspect]
     Indication: HYPERTRIGLYCERIDAEMIA
     Dates: start: 20040501
  3. LIPITOR [Concomitant]
  4. IMDUR [Concomitant]
  5. NITROGLYCERIN [Concomitant]
  6. ZOLOFT [Concomitant]
  7. NIASPAN [Concomitant]

REACTIONS (2)
  - AMMONIA INCREASED [None]
  - GAMMA-GLUTAMYLTRANSFERASE INCREASED [None]
